FAERS Safety Report 6974660-5 (Version None)
Quarter: 2010Q3

REPORT INFORMATION
  Report Type: 
  Country: None (occurrence: None)
  Receive Date: 20100909
  Receipt Date: 20100909
  Transmission Date: 20110219
  Serious: Yes (Other)
  Sender: FDA-Public Use
  Company Number: None

PATIENT
  Sex: Female
  Weight: 95.6 kg

DRUGS (17)
  1. IXABEPILONE [Suspect]
     Indication: BREAST CANCER
     Dosage: 32MG/M2 Q 3WKS, IV
     Route: 042
     Dates: start: 20100817
  2. VORINOSTAT [Suspect]
     Indication: BREAST CANCER
     Dosage: 300MG DAILY X14D/28D PO
     Route: 048
     Dates: start: 20100816, end: 20100822
  3. ASPIRIN [Concomitant]
  4. CA+ [Concomitant]
  5. COZAAR [Concomitant]
  6. IRON [Concomitant]
  7. JANUVIA [Concomitant]
  8. LYRICA [Concomitant]
  9. METAMUCIL-2 [Concomitant]
  10. METFORMIN [Concomitant]
  11. M.V.I. [Concomitant]
  12. NEUPOGEN [Concomitant]
  13. PAPAYA ENZYME [Concomitant]
  14. SIMVASTATIN [Concomitant]
  15. TOPROL-XL [Concomitant]
  16. TRILIPIX [Concomitant]
  17. VIT B6 AND 12 [Concomitant]

REACTIONS (1)
  - NEUTROPHIL COUNT DECREASED [None]
